FAERS Safety Report 7763769-4 (Version None)
Quarter: 2011Q3

REPORT INFORMATION
  Report Type: 
  Country: None (occurrence: None)
  Receive Date: 20110919
  Receipt Date: 20110915
  Transmission Date: 20111222
  Serious: Yes (Death, Hospitalization, Other)
  Sender: FDA-Public Use
  Company Number: 2010SP060784

PATIENT
  Age: 64 Year
  Sex: Male
  Weight: 45 kg

DRUGS (5)
  1. LAXOBERON [Concomitant]
  2. PURSENNID [Concomitant]
  3. TEMODAL [Suspect]
     Indication: ANAPLASTIC ASTROCYTOMA
     Dosage: 75 MG/M2;QD;PO, 150 MG/M2;QD;PO
     Route: 048
     Dates: start: 20091119, end: 20091123
  4. TEMODAL [Suspect]
     Indication: ANAPLASTIC ASTROCYTOMA
     Dosage: 75 MG/M2;QD;PO, 150 MG/M2;QD;PO
     Route: 048
     Dates: start: 20090904, end: 20091022
  5. MAGMIT [Concomitant]

REACTIONS (6)
  - WHITE BLOOD CELL COUNT DECREASED [None]
  - LYMPHOCYTE COUNT DECREASED [None]
  - DISEASE PROGRESSION [None]
  - DECREASED APPETITE [None]
  - MYOCARDIAL ISCHAEMIA [None]
  - ANAPLASTIC ASTROCYTOMA [None]
